FAERS Safety Report 8369265-8 (Version None)
Quarter: 2012Q2

REPORT INFORMATION
  Report Type: 
  Country: None (occurrence: None)
  Receive Date: 20120518
  Receipt Date: 20120511
  Transmission Date: 20120825
  Serious: Yes (Hospitalization, Other)
  Sender: FDA-Public Use
  Company Number: PHHY2011CA29547

PATIENT
  Sex: Female

DRUGS (8)
  1. SANDOSTATIN LAR [Suspect]
     Indication: ANGIODYSPLASIA
     Dosage: 20 MG, QMO
     Route: 030
     Dates: start: 20090505
  2. FERROUS SULFATE TAB [Concomitant]
     Dosage: 300 MG, BID
  3. PANTOPRAZOLE SODIUM [Concomitant]
     Dosage: 40 MG, UNK
  4. ACT [Concomitant]
     Dosage: 325 MG, UNK
  5. SANDOSTATIN LAR [Suspect]
     Dosage: 20 MG, QMO
     Route: 030
     Dates: start: 20110912
  6. METFORMIN HCL [Concomitant]
     Dosage: 500 MG, TID
  7. ASPIRIN [Concomitant]
  8. HYZAAR [Concomitant]

REACTIONS (9)
  - CHOLANGITIS [None]
  - FATIGUE [None]
  - ANAEMIA [None]
  - NEPHROLITHIASIS [None]
  - BLOOD POTASSIUM DECREASED [None]
  - SYNCOPE [None]
  - PAIN IN EXTREMITY [None]
  - BLOOD PRESSURE SYSTOLIC INCREASED [None]
  - ASTHENIA [None]
